FAERS Safety Report 8841160 (Version 1)
Quarter: 2012Q4

REPORT INFORMATION
  Report Type: 
  Country: HU (occurrence: HU)
  Receive Date: 20121015
  Receipt Date: 20121015
  Transmission Date: 20130627
  Serious: Yes (Hospitalization)
  Sender: FDA-Public Use
  Company Number: HU-ROCHE-1145026

PATIENT
  Age: 73 Year
  Sex: Female

DRUGS (2)
  1. ROACTEMRA [Suspect]
     Indication: RHEUMATOID ARTHRITIS
     Route: 041
     Dates: start: 201110
  2. DIGOXIN [Concomitant]

REACTIONS (1)
  - Atrial fibrillation [Recovered/Resolved with Sequelae]
